FAERS Safety Report 16255884 (Version 2)
Quarter: 2019Q2

REPORT INFORMATION
  Report Type: Spontaneous
  Country: US (occurrence: US)
  Receive Date: 20190430
  Receipt Date: 20190516
  Transmission Date: 20190711
  Serious: No
  Sender: FDA-Public Use
  Company Number: US-PFIZER INC-2019183584

PATIENT
  Age: 48 Year
  Sex: Female

DRUGS (1)
  1. VERAPAMIL HCL [Suspect]
     Active Substance: VERAPAMIL HYDROCHLORIDE
     Dosage: 120 MG, UNK

REACTIONS (5)
  - Palpitations [Unknown]
  - Nausea [Unknown]
  - Drug hypersensitivity [Unknown]
  - Hypotension [Unknown]
  - Weight decreased [Unknown]
